FAERS Safety Report 13885534 (Version 2)
Quarter: 2017Q3

REPORT INFORMATION
  Report Type: Spontaneous
  Country: US (occurrence: US)
  Receive Date: 20170821
  Receipt Date: 20170918
  Transmission Date: 20171127
  Serious: Yes (Hospitalization, Other)
  Sender: FDA-Public Use
  Company Number: US-PFIZER INC-2017356400

PATIENT
  Age: 66 Year
  Sex: Female
  Weight: 57 kg

DRUGS (32)
  1. GABAPENTIN. [Suspect]
     Active Substance: GABAPENTIN
     Indication: PAROSMIA
     Dosage: 100 MG, 4X/DAY
     Route: 048
  2. MIDODRINE [Suspect]
     Active Substance: MIDODRINE
     Indication: HYPOTENSION
     Dosage: 37.5 MG, 1X/DAY
     Route: 048
  3. HYDRALAZINE [Concomitant]
     Active Substance: HYDRALAZINE HYDROCHLORIDE
     Indication: BLOOD PRESSURE ABNORMAL
  4. MAGNESIUM OXIDE. [Concomitant]
     Active Substance: MAGNESIUM OXIDE
     Indication: MAGNESIUM DEFICIENCY
     Dosage: 400 MG, 2X/DAY
     Route: 048
     Dates: start: 20170701
  5. WARFARIN [Concomitant]
     Active Substance: WARFARIN
     Indication: ANTICOAGULANT THERAPY
     Dosage: UNK (DOSE VARIES DEPENDING ON HER INR BLOOD WORK.)
     Dates: start: 2016
  6. VITAMIN D2 [Concomitant]
     Active Substance: ERGOCALCIFEROL
     Indication: CALCIUM DEFICIENCY
     Dosage: UNK UNK, WEEKLY (1.5MG/50,000 UNITS)
     Route: 048
     Dates: start: 20170701
  7. LINZESS [Concomitant]
     Active Substance: LINACLOTIDE
     Dosage: 145 UG, UNK (2ND TIME)
  8. EFFEXOR XR [Suspect]
     Active Substance: VENLAFAXINE HYDROCHLORIDE
     Indication: BLOOD PRESSURE DIASTOLIC
     Dosage: 37.5 MG, 1X/DAY
     Route: 048
     Dates: start: 2007, end: 201708
  9. WARFARIN [Concomitant]
     Active Substance: WARFARIN
     Indication: THROMBOSIS
     Dosage: 3 MG, 1X/DAY
     Route: 048
  10. SODIUM BICARBONATE. [Concomitant]
     Active Substance: SODIUM BICARBONATE
     Indication: ALKALOSIS
     Dosage: 650 MG, 4X/DAY [TWICE AT BREAKFAST AND TWICE AT DINNER.^]
     Route: 048
  11. LINZESS [Concomitant]
     Active Substance: LINACLOTIDE
     Dosage: 145 UG, 1X/DAY (ON DAYS 2, 4 + 6)
     Route: 048
  12. GABAPENTIN. [Suspect]
     Active Substance: GABAPENTIN
     Indication: NEURALGIA
     Dosage: 100 MG (AN 80 MG CAPSULE AND A 20 MG CAPSULE) (THREE OR FOUR TIMES A DAY)
     Dates: end: 2017
  13. CALCITRIOL. [Concomitant]
     Active Substance: CALCITRIOL
     Indication: SUPPLEMENTATION THERAPY
     Dosage: 0.25 UG, 1X/DAY
     Route: 048
     Dates: start: 20170701
  14. LINZESS [Concomitant]
     Active Substance: LINACLOTIDE
     Indication: CONSTIPATION
     Dosage: 145 UG, 3X/DAY (DAYS 1, 3, 5 + 7)
     Route: 048
     Dates: start: 201704
  15. COENZYME Q10 [Concomitant]
     Active Substance: UBIDECARENONE
     Indication: UBIQUINONE DECREASED
     Dosage: 200 MG, 1X/DAY
     Route: 048
     Dates: start: 20170701
  16. LEVOTHYROXINE. [Concomitant]
     Active Substance: LEVOTHYROXINE
     Indication: THYROID DISORDER
  17. VITAMIN B12 [Concomitant]
     Active Substance: CYANOCOBALAMIN
     Indication: VITAMIN B12 DEFICIENCY
     Dosage: UNK UNK, AS NEEDED (ONCE A MONTH AS NEEDED, DEPENDING ON HER B12 LEVEL)
  18. EFFEXOR XR [Suspect]
     Active Substance: VENLAFAXINE HYDROCHLORIDE
     Indication: HYPOTENSION
  19. CALCIUM CARBONATE. [Concomitant]
     Active Substance: CALCIUM CARBONATE
     Indication: BLOOD CALCIUM DECREASED
     Dosage: 1300 MG, 3X/DAY [2 PILLS 3 TIMES A DAY]
     Route: 048
     Dates: start: 20170701
  20. COENZYME Q10 [Concomitant]
     Active Substance: UBIDECARENONE
     Indication: CARDIAC DISORDER
  21. DILTIAZEM. [Concomitant]
     Active Substance: DILTIAZEM
     Indication: ARRHYTHMIA
     Dosage: 120 MG, 1X/DAY
     Route: 048
     Dates: start: 2016
  22. SENNA-DOCUSATE [Concomitant]
     Active Substance: DOCUSATE SODIUM\SENNOSIDES
     Indication: CONSTIPATION
     Dosage: 50 MG, 3X/DAY (TWO TABLETS AT BREAKFAST AND ONE AT LUNCH)
  23. GABAPENTIN. [Suspect]
     Active Substance: GABAPENTIN
     Indication: PAIN
  24. FLECAINIDE [Suspect]
     Active Substance: FLECAINIDE
     Dosage: 75MG, 1X/DAY  [HALF A 150MG TABLET ONCE A DAY]
     Route: 048
  25. FLECAINIDE [Suspect]
     Active Substance: FLECAINIDE
     Indication: ARRHYTHMIA
     Dosage: 37.5 MG, DAILY (75MG, TAKES 1/2 OF TABLET A DAY)
     Route: 048
     Dates: start: 201707, end: 2017
  26. HYDRALAZINE [Concomitant]
     Active Substance: HYDRALAZINE HYDROCHLORIDE
     Indication: HYPOTENSION
     Dosage: 10 MG, 3X/DAY
     Route: 048
     Dates: start: 20170701
  27. SODIUM BICARBONATE. [Concomitant]
     Active Substance: SODIUM BICARBONATE
     Indication: BLOOD SODIUM DECREASED
  28. LINZESS [Concomitant]
     Active Substance: LINACLOTIDE
     Dosage: 72 UG, UNK (ON THE THIRD TIME OF THE DAY)
  29. LEVOTHYROXINE. [Concomitant]
     Active Substance: LEVOTHYROXINE
     Indication: GOITRE
     Dosage: 80 UG, 1X/DAY
     Route: 048
  30. CALCITRIOL. [Concomitant]
     Active Substance: CALCITRIOL
     Indication: BLOOD CALCIUM DECREASED
  31. BRIMONIDINE TARTRATE W/TIMOLOL [Concomitant]
     Indication: AUTOIMMUNE RETINOPATHY
     Dosage: 2 GTT, 2X/DAY  (1 DROP IN EACH EYE TWICE A DAY)
     Route: 047
  32. SENNA [Concomitant]
     Active Substance: SENNA LEAF\SENNOSIDES\SENNOSIDES A AND B
     Indication: CONSTIPATION
     Dosage: 8.6 MG, 3X/DAY
     Route: 048
     Dates: start: 20170701

REACTIONS (6)
  - Hypoacusis [Unknown]
  - Hallucination [Recovering/Resolving]
  - Glaucoma [Unknown]
  - Eye disorder [Recovering/Resolving]
  - Arrhythmia [Unknown]
  - Serotonin syndrome [Unknown]

NARRATIVE: CASE EVENT DATE: 201707
